FAERS Safety Report 17957096 (Version 2)
Quarter: 2022Q2

REPORT INFORMATION
  Report Type: Spontaneous
  Country: US (occurrence: US)
  Receive Date: 20200629
  Receipt Date: 20220519
  Transmission Date: 20220721
  Serious: Yes (Death, Other)
  Sender: FDA-Public Use
  Company Number: US-SAARTEMIS-SAC202006250213

PATIENT
  Age: 68 Year
  Sex: Male

DRUGS (1)
  1. ZANTAC [Suspect]
     Active Substance: RANITIDINE HYDROCHLORIDE
     Indication: Dyspepsia
     Dosage: UNK, QD
     Route: 065
     Dates: start: 201501, end: 201901

REACTIONS (6)
  - Colorectal cancer [Fatal]
  - Bladder cancer [Fatal]
  - Hepatic cancer [Fatal]
  - Pancreatic carcinoma [Fatal]
  - Gastric cancer [Fatal]
  - Prostate cancer [Fatal]

NARRATIVE: CASE EVENT DATE: 20180101
